FAERS Safety Report 7424916-7 (Version None)
Quarter: 2011Q2

REPORT INFORMATION
  Report Type: 
  Country: None (occurrence: None)
  Receive Date: 20110419
  Receipt Date: 20110414
  Transmission Date: 20111010
  Serious: Yes (Hospitalization)
  Sender: FDA-Public Use
  Company Number: US-B.I. PHARMACEUTICALS,INC./RIDGEFIELD-2011-BP-01562BP

PATIENT
  Sex: Female

DRUGS (7)
  1. PRADAXA [Suspect]
     Indication: DRUG THERAPY CHANGED
  2. DIOVAN HCT [Concomitant]
     Indication: HYPERTENSION
  3. MULTAQ [Concomitant]
     Indication: ATRIAL FIBRILLATION
     Dosage: 800 MG
  4. OMEPRAZOLE DR [Concomitant]
     Dosage: 20 MG
  5. CALCIUM [Concomitant]
     Dosage: 1200 MG
  6. PRADAXA [Suspect]
     Indication: ATRIAL FIBRILLATION
     Dosage: 300 MG
     Route: 048
     Dates: start: 20101117, end: 20110108
  7. FOSAMAX GENERIC [Concomitant]
     Indication: PROPHYLAXIS

REACTIONS (3)
  - VEIN DISORDER [None]
  - FULL BLOOD COUNT DECREASED [None]
  - ANTICOAGULANT THERAPY [None]
